FAERS Safety Report 6237755-X (Version None)
Quarter: 2009Q2

REPORT INFORMATION
  Report Type: 
  Country: None (occurrence: None)
  Receive Date: 20090618
  Receipt Date: 20090607
  Transmission Date: 20091009
  Serious: Yes (Hospitalization)
  Sender: FDA-Public Use
  Company Number: 1-18744422

PATIENT
  Sex: Female

DRUGS (2)
  1. FENTANYL TRANSDERMAL SYSTEM [Suspect]
     Indication: BONE PAIN
     Dosage: 100MCG/HR EVERY 3 DAY, TRANSDERMAL
     Route: 062
     Dates: start: 20090101
  2. UNSPECIFIED NSAIDS, GLUCOSAMINE/CHONDROITIN [Concomitant]

REACTIONS (2)
  - VOMITING [None]
  - WITHDRAWAL SYNDROME [None]
